APPROVED DRUG PRODUCT: NITROFURAZONE
Active Ingredient: NITROFURAZONE
Strength: 0.2%
Dosage Form/Route: OINTMENT;TOPICAL
Application: A086766 | Product #001
Applicant: WENDT LABORATORIES INC
Approved: Approved Prior to Jan 1, 1982 | RLD: No | RS: No | Type: DISCN